FAERS Safety Report 5737521-5 (Version None)
Quarter: 2008Q2

REPORT INFORMATION
  Report Type: 
  Country: None (occurrence: None)
  Receive Date: 20080514
  Receipt Date: 20080506
  Transmission Date: 20081010
  Serious: Yes (Hospitalization, Other)
  Sender: FDA-Public Use
  Company Number: US-BAYER-200818252NA

PATIENT
  Age: 57 Year
  Sex: Female

DRUGS (4)
  1. AVELOX [Suspect]
     Indication: BRONCHITIS
     Dosage: TOTAL DAILY DOSE: 400 MG  UNIT DOSE: 400 MG
     Route: 048
     Dates: start: 20080318
  2. ZITHROMAX [Concomitant]
     Route: 048
     Dates: start: 20080308
  3. DECADRON [Concomitant]
     Route: 042
     Dates: start: 20080318
  4. DECADRON [Concomitant]
     Route: 042
     Dates: start: 20080318

REACTIONS (6)
  - ANAPHYLACTIC REACTION [None]
  - DIZZINESS [None]
  - HYPERHIDROSIS [None]
  - PRURITUS [None]
  - RASH ERYTHEMATOUS [None]
  - RESPIRATORY DISTRESS [None]
